FAERS Safety Report 18141344 (Version 3)
Quarter: 2020Q4

REPORT INFORMATION
  Report Type: Spontaneous
  Country: DE (occurrence: DE)
  Receive Date: 20200812
  Receipt Date: 20201030
  Transmission Date: 20210113
  Serious: Yes (Life-Threatening, Hospitalization)
  Sender: FDA-Public Use
  Company Number: NVSC2020DE220954

PATIENT
  Age: 25 Year
  Sex: Female

DRUGS (12)
  1. SPIRONOLACTONE. [Concomitant]
     Active Substance: SPIRONOLACTONE
     Indication: HYPERALDOSTERONISM
     Dosage: 100 MG, BID
     Route: 065
  2. URAPIDIL [Suspect]
     Active Substance: URAPIDIL
     Indication: HYPERTENSION
     Dosage: UNK
     Route: 042
  3. METHYLDOPA. [Suspect]
     Active Substance: METHYLDOPA
     Indication: HYPERTENSION
     Dosage: 2000 MG, QD
     Route: 048
  4. METYRAPONE [Concomitant]
     Active Substance: METYRAPONE
     Indication: HYPERALDOSTERONISM
  5. SPIRONOLACTONE. [Concomitant]
     Active Substance: SPIRONOLACTONE
     Indication: CUSHING^S SYNDROME
  6. NIFEDIPINE. [Suspect]
     Active Substance: NIFEDIPINE
     Indication: HYPERTENSION
     Dosage: 20 MG, BID
     Route: 048
  7. HYDRALAZINE [Suspect]
     Active Substance: HYDRALAZINE HYDROCHLORIDE
     Indication: HYPERTENSION
     Dosage: 25 MG, TID
     Route: 042
  8. METOPROLOL. [Suspect]
     Active Substance: METOPROLOL
     Indication: HYPERTENSION
     Dosage: 95 MG, BID
     Route: 048
  9. NIFEDIPINE. [Suspect]
     Active Substance: NIFEDIPINE
     Dosage: 5 MG, BID
     Route: 065
  10. METYRAPONE [Concomitant]
     Active Substance: METYRAPONE
     Indication: CUSHING^S SYNDROME
     Dosage: 2.5 MG, QD
     Route: 065
  11. HYDROCHLOROTHIAZIDE. [Suspect]
     Active Substance: HYDROCHLOROTHIAZIDE
     Indication: HYPERTENSION
     Dosage: 12.5 MG, BID
     Route: 048
  12. HYDROCHLOROTHIAZIDE. [Suspect]
     Active Substance: HYDROCHLOROTHIAZIDE
     Dosage: UNK
     Route: 042

REACTIONS (3)
  - Drug ineffective [Recovered/Resolved]
  - Premature delivery [Unknown]
  - Maternal exposure during pregnancy [Unknown]
